FAERS Safety Report 15289392 (Version 2)
Quarter: 2018Q4

REPORT INFORMATION
  Report Type: Spontaneous
  Country: FR (occurrence: FR)
  Receive Date: 20180817
  Receipt Date: 20181019
  Transmission Date: 20190204
  Serious: Yes (Death, Hospitalization, Congenital Anomaly)
  Sender: FDA-Public Use
  Company Number: FR-TEVA-2018-FR-942825

PATIENT
  Age: 53 Year
  Sex: Male
  Weight: 81 kg

DRUGS (11)
  1. ACIDE FOLINIQUE [Concomitant]
     Active Substance: LEUCOVORIN
     Route: 048
     Dates: start: 20180622
  2. PREDNISONE. [Concomitant]
     Active Substance: PREDNISONE
     Indication: BURKITT^S LYMPHOMA
     Route: 048
     Dates: start: 20180622
  3. BACTRIM [Concomitant]
     Active Substance: SULFAMETHOXAZOLE\TRIMETHOPRIM
     Route: 048
     Dates: start: 20180622
  4. INNOHEP [Concomitant]
     Active Substance: TINZAPARIN SODIUM
     Route: 058
     Dates: start: 20180622
  5. VINCRISTINE SULFATE. [Suspect]
     Active Substance: VINCRISTINE SULFATE
     Indication: BURKITT^S LYMPHOMA
     Route: 042
     Dates: start: 20180622, end: 20180622
  6. CYCLOPHOSPHAMIDE. [Suspect]
     Active Substance: CYCLOPHOSPHAMIDE
     Indication: BURKITT^S LYMPHOMA
     Route: 042
     Dates: start: 20180622, end: 20180623
  7. DOXORUBICIN [Suspect]
     Active Substance: DOXORUBICIN
     Indication: BURKITT^S LYMPHOMA
     Route: 042
     Dates: start: 20180623, end: 20180623
  8. METHOTREXATE MYLAN [Suspect]
     Active Substance: METHOTREXATE SODIUM
     Indication: BURKITT^S LYMPHOMA
     Route: 042
     Dates: start: 20180601, end: 20180622
  9. ZELITREX 500 MG, COMPRIM? ENROB? [Concomitant]
     Active Substance: VALACYCLOVIR HYDROCHLORIDE
     Dates: start: 20180622
  10. ALLOPURINOL. [Concomitant]
     Active Substance: ALLOPURINOL
     Route: 048
  11. ZOPHREN 8 MG/4 ML, SOLUTION INJECTABLE EN SERINGUE PR?-REMPLIE [Concomitant]
     Indication: NAUSEA
     Route: 042
     Dates: start: 20180622

REACTIONS (4)
  - Mucosal inflammation [Fatal]
  - Renal failure [Fatal]
  - Aplasia [Fatal]
  - Hyperbilirubinaemia [Fatal]

NARRATIVE: CASE EVENT DATE: 20180622
